FAERS Safety Report 8766431 (Version 1)
Quarter: 2012Q4

REPORT INFORMATION
  Report Type: 
  Country: GB (occurrence: GB)
  Receive Date: 20120905
  Receipt Date: 20120905
  Transmission Date: 20130627
  Serious: Yes (Hospitalization, Disabling)
  Sender: FDA-Public Use
  Company Number: GB-TEVA-355909ISR

PATIENT
  Age: 36 Year
  Sex: Male
  Weight: 100.5 kg

DRUGS (2)
  1. METRONIDAZOLE [Suspect]
     Indication: TOOTH DISORDER
     Route: 048
     Dates: start: 201203
  2. TRIMOVATE [Concomitant]
     Indication: FUNGAL SKIN INFECTION
     Dosage: 3 Dosage forms Daily;
     Route: 061
     Dates: start: 20120329

REACTIONS (6)
  - Visual impairment [Not Recovered/Not Resolved]
  - Tinnitus [Not Recovered/Not Resolved]
  - Anxiety [Not Recovered/Not Resolved]
  - Paranoia [Not Recovered/Not Resolved]
  - Hallucination [Not Recovered/Not Resolved]
  - Feeling abnormal [Not Recovered/Not Resolved]
